FAERS Safety Report 15634777 (Version 1)
Quarter: 2018Q4

REPORT INFORMATION
  Report Type: Spontaneous
  Country: US (occurrence: US)
  Receive Date: 20181119
  Receipt Date: 20181119
  Transmission Date: 20190205
  Serious: Yes (Other)
  Sender: FDA-Public Use
  Company Number: US-CELGENEUS-USA-20181103271

PATIENT
  Sex: Female

DRUGS (2)
  1. POMALYST [Suspect]
     Active Substance: POMALIDOMIDE
     Dosage: NIGHTLY FOR 21 DAYS AND 7 DAYS OFF
     Route: 048
     Dates: start: 20180531
  2. POMALYST [Suspect]
     Active Substance: POMALIDOMIDE
     Indication: PLASMA CELL MYELOMA
     Dosage: 4 MG
     Route: 048
     Dates: start: 201701

REACTIONS (2)
  - Exfoliative rash [Not Recovered/Not Resolved]
  - Decreased appetite [Not Recovered/Not Resolved]
